FAERS Safety Report 8409754 (Version 12)
Quarter: 2014Q1

REPORT INFORMATION
  Report Type: Report from Study
  Country: DE (occurrence: DE)
  Receive Date: 20120216
  Receipt Date: 20140203
  Transmission Date: 20141002
  Serious: Yes (Life-Threatening, Hospitalization)
  Sender: FDA-Public Use
  Company Number: DE-ROCHE-1039721

PATIENT
  Age: 77 Year
  Sex: Male
  Weight: 78 kg

DRUGS (10)
  1. VEMURAFENIB [Suspect]
     Indication: MALIGNANT MELANOMA
     Route: 048
     Dates: start: 20120130, end: 20120209
  2. VEMURAFENIB [Suspect]
     Route: 048
     Dates: start: 20120303
  3. ACETYLSALICYLIC ACID [Concomitant]
     Route: 065
     Dates: start: 20120124
  4. PREGABALIN [Concomitant]
     Route: 065
     Dates: start: 20120124
  5. OMEPRAZOL [Concomitant]
     Route: 065
     Dates: start: 20120124
  6. RAMIPRIL [Concomitant]
     Route: 065
     Dates: start: 20120124
  7. METAMIZOL [Concomitant]
     Route: 065
     Dates: start: 20120124
  8. NALOXONE/TILIDINE [Concomitant]
     Dosage: 400/32 MG
     Route: 065
     Dates: start: 20120124
  9. IBUPROFEN [Concomitant]
     Route: 065
     Dates: start: 20120124
  10. MACROGOL [Concomitant]
     Dosage: DOSE:1
     Route: 065
     Dates: start: 20120124

REACTIONS (1)
  - Cardiac failure [Recovered/Resolved]
